FAERS Safety Report 11185781 (Version 3)
Quarter: 2017Q4

REPORT INFORMATION
  Report Type: Report from Study
  Country: BE (occurrence: BE)
  Receive Date: 20150612
  Receipt Date: 20171005
  Transmission Date: 20180320
  Serious: Yes (Hospitalization)
  Sender: FDA-Public Use
  Company Number: BE-ASTRAZENECA-2015SE55287

PATIENT
  Age: 17312 Day
  Sex: Female
  Weight: 89.9 kg

DRUGS (10)
  1. DAPAGLIFLOZIN. [Suspect]
     Active Substance: DAPAGLIFLOZIN
     Indication: TYPE 1 DIABETES MELLITUS
     Route: 048
     Dates: start: 20150527, end: 20150603
  2. LEVOFLOXACIN. [Concomitant]
     Active Substance: LEVOFLOXACIN
     Dosage: 500.0MG UNKNOWN
  3. NATRIUMCHLORIDE [Concomitant]
     Route: 065
  4. CHLOROPOTASSURIL [Concomitant]
     Dosage: 20 MEQ/20 ML
  5. GLUCOSE [Concomitant]
     Active Substance: DEXTROSE
     Route: 065
  6. INSULIN [Concomitant]
     Active Substance: INSULIN NOS
     Dosage: 24.0IU UNKNOWN
     Route: 065
     Dates: start: 20080715
  7. GLUCOSE [Concomitant]
     Active Substance: DEXTROSE
     Route: 065
  8. NATRIUM BICARBONATE [Concomitant]
     Route: 065
  9. PARACETAMOL [Concomitant]
     Active Substance: ACETAMINOPHEN
     Dosage: 1.0G UNKNOWN
     Route: 065
  10. POTASSIUM GLUCONATE [Concomitant]
     Active Substance: POTASSIUM GLUCONATE
     Dosage: 20  MEQ/15 ML

REACTIONS (1)
  - Ketoacidosis [Recovered/Resolved]

NARRATIVE: CASE EVENT DATE: 20150601
